FAERS Safety Report 4836538-2 (Version None)
Quarter: 2005Q4

REPORT INFORMATION
  Report Type: 
  Country: None (occurrence: None)
  Receive Date: 20051118
  Receipt Date: 20051116
  Transmission Date: 20060501
  Serious: Yes (Death)
  Sender: FDA-Public Use
  Company Number: T05-GER-04969-01

PATIENT
  Age: 86 Year
  Sex: Female
  Weight: 76 kg

DRUGS (5)
  1. AXURA (MEMANTINE HYDROCHLORIDE) [Suspect]
     Indication: DEMENTIA ALZHEIMER'S TYPE
     Dosage: 40 MG QD PO
     Route: 048
  2. AXURA (MEMANTINE HYDROCHLORIDE) [Suspect]
     Indication: DEMENTIA ALZHEIMER'S TYPE
     Dosage: 30 MG QD PO
     Route: 048
  3. AXURA (MEMANTINE HYDROCHLORIDE) [Suspect]
     Indication: DEMENTIA ALZHEIMER'S TYPE
     Dosage: 20 MG QD PO
     Route: 048
  4. AMARYL [Concomitant]
  5. AXURA (MEMANTINE HYDROCHLORIDE) [Suspect]
     Indication: DEMENTIA ALZHEIMER'S TYPE
     Dosage: 10 MG QD PO
     Route: 048
     Dates: start: 20050622

REACTIONS (1)
  - PNEUMONIA [None]
